FAERS Safety Report 18933513 (Version 1)
Quarter: 2021Q1

REPORT INFORMATION
  Report Type: Spontaneous
  Country: US (occurrence: US)
  Receive Date: 20210224
  Receipt Date: 20210224
  Transmission Date: 20210420
  Serious: Yes (Hospitalization)
  Sender: FDA-Public Use
  Company Number: None

PATIENT
  Sex: Male

DRUGS (18)
  1. ESOMEPRAZOLE. [Concomitant]
     Active Substance: ESOMEPRAZOLE MAGNESIUM
  2. GABAPENTIN. [Concomitant]
     Active Substance: GABAPENTIN
  3. INCRUSE ELLIPTA [Concomitant]
     Active Substance: UMECLIDINIUM BROMIDE
  4. SYMBICORT [Concomitant]
     Active Substance: BUDESONIDE\FORMOTEROL FUMARATE DIHYDRATE
  5. FLUTICASONE. [Concomitant]
     Active Substance: FLUTICASONE
  6. OXYBUTYNIN. [Concomitant]
     Active Substance: OXYBUTYNIN CHLORIDE
  7. ALBUTEROL. [Concomitant]
     Active Substance: ALBUTEROL
  8. ALENDRONATATE [Concomitant]
  9. MORPHINE [Concomitant]
     Active Substance: MORPHINE
  10. ESCITALOPRAM [Concomitant]
     Active Substance: ESCITALOPRAM OXALATE
  11. METHOCARBAMOL. [Concomitant]
     Active Substance: METHOCARBAMOL
  12. OXYCODONE AND ACETAMINOPHEN [Concomitant]
     Active Substance: ACETAMINOPHEN\OXYCODONE HYDROCHLORIDE
  13. VITAMIN D [Concomitant]
     Active Substance: VITAMIN D NOS
  14. DULOXETINE. [Concomitant]
     Active Substance: DULOXETINE
  15. AMITRIPTYLINE [Concomitant]
     Active Substance: AMITRIPTYLINE
  16. ROSUVASTATIN. [Concomitant]
     Active Substance: ROSUVASTATIN
  17. HUMIRA [Suspect]
     Active Substance: ADALIMUMAB
     Indication: RHEUMATOID ARTHRITIS
     Dosage: ?          OTHER FREQUENCY:EVERY OTHER WEEK;?
     Route: 058
  18. ALPRAZOLAM. [Concomitant]
     Active Substance: ALPRAZOLAM

REACTIONS (1)
  - Pneumonia [None]
